FAERS Safety Report 9925587 (Version 2)
Quarter: 2014Q1

REPORT INFORMATION
  Report Type: Report from Study
  Country: US (occurrence: US)
  Receive Date: 20140226
  Receipt Date: 20140227
  Transmission Date: 20141002
  Serious: Yes (Hospitalization)
  Sender: FDA-Public Use
  Company Number: US-JNJFOC-20140214636

PATIENT
  Age: 9 Year
  Sex: Male
  Weight: 21.5 kg

DRUGS (7)
  1. REMICADE [Suspect]
     Indication: INFLAMMATORY BOWEL DISEASE
     Route: 042
     Dates: start: 20100710
  2. METHOTREXATE [Suspect]
     Indication: PRODUCT USED FOR UNKNOWN INDICATION
     Route: 058
  3. CHOLECALCIFEROL [Concomitant]
     Route: 065
  4. MULTIVITAMINS [Concomitant]
     Route: 065
  5. PEDIASURE [Concomitant]
     Route: 065
  6. MIRALAX [Concomitant]
     Route: 065
  7. AMOXICILLIN [Concomitant]
     Route: 065

REACTIONS (1)
  - Influenza [Recovered/Resolved]
